FAERS Safety Report 5081825-9 (Version None)
Quarter: 2006Q3

REPORT INFORMATION
  Report Type: 
  Country: None (occurrence: None)
  Receive Date: 20060816
  Receipt Date: 20060713
  Transmission Date: 20061208
  Serious: Yes (Other)
  Sender: FDA-Public Use
  Company Number: SE-BRISTOL-MYERS SQUIBB COMPANY-13448345

PATIENT
  Age: 37 Year
  Sex: Female

DRUGS (9)
  1. ENDOXAN [Suspect]
     Indication: SYSTEMIC SCLEROSIS
     Route: 042
     Dates: start: 20050622, end: 20050622
  2. UROMITEXAN [Suspect]
     Indication: SYSTEMIC SCLEROSIS
     Route: 042
     Dates: start: 20050622, end: 20050622
  3. ESOMEPRAZOLE MAGNESIUM [Concomitant]
  4. NIFEDIPINE [Concomitant]
  5. FOLACIN [Concomitant]
  6. PREDNISOLONE [Concomitant]
  7. VALPROIC ACID [Concomitant]
  8. NABUMETONE [Concomitant]
  9. CALCICHEW [Concomitant]

REACTIONS (3)
  - GRAND MAL CONVULSION [None]
  - PNEUMONIA ASPIRATION [None]
  - PYREXIA [None]
